FAERS Safety Report 23832505 (Version 2)
Quarter: 2024Q2

REPORT INFORMATION
  Report Type: Report from Study
  Country: US (occurrence: US)
  Receive Date: 20240508
  Receipt Date: 20240610
  Transmission Date: 20240715
  Serious: No
  Sender: FDA-Public Use
  Company Number: US-SA-SAC20240429000308

PATIENT
  Age: 67 Year
  Sex: Male

DRUGS (2)
  1. DUPIXENT [Suspect]
     Active Substance: DUPILUMAB
     Indication: Dermatitis atopic
     Dosage: 600 MG, 1X
     Route: 058
  2. DUPIXENT [Suspect]
     Active Substance: DUPILUMAB
     Dosage: 300 MG, QOW
     Route: 058
     Dates: end: 202404

REACTIONS (6)
  - Drug hypersensitivity [Unknown]
  - Rash [Unknown]
  - Conjunctivitis [Recovering/Resolving]
  - Eye pruritus [Unknown]
  - Ocular hyperaemia [Unknown]
  - Lacrimation increased [Unknown]
